FAERS Safety Report 21348289 (Version 1)
Quarter: 2022Q3

REPORT INFORMATION
  Report Type: Spontaneous
  Country: BR (occurrence: None)
  Receive Date: 20220919
  Receipt Date: 20220919
  Transmission Date: 20221026
  Serious: Yes (Other)
  Sender: FDA-Public Use
  Company Number: BR-ROCHE-3180703

PATIENT
  Sex: Male

DRUGS (1)
  1. XELODA [Suspect]
     Active Substance: CAPECITABINE
     Indication: Colorectal cancer
     Dosage: 500MG TABLETS WITH 120 UNITS?LAST ADMINISTRATION WAS PERFORMED IN MAY/2022.
     Route: 048
     Dates: start: 202203

REACTIONS (1)
  - Gastrointestinal disorder [Unknown]
